FAERS Safety Report 5830619-2 (Version None)
Quarter: 2008Q3

REPORT INFORMATION
  Report Type: 
  Country: None (occurrence: None)
  Receive Date: 20080801
  Receipt Date: 20070820
  Transmission Date: 20090109
  Serious: No
  Sender: FDA-Public Use
  Company Number: US-BRISTOL-MYERS SQUIBB COMPANY-13882949

PATIENT
  Sex: Female
  Weight: 82 kg

DRUGS (4)
  1. COUMADIN [Suspect]
     Indication: HEART RATE INCREASED
  2. HYDROCHLOROTHIAZIDE [Concomitant]
  3. LISINOPRIL [Concomitant]
  4. ATENOLOL [Concomitant]

REACTIONS (1)
  - BURNING SENSATION [None]
